FAERS Safety Report 6156830-1 (Version None)
Quarter: 2009Q2

REPORT INFORMATION
  Report Type: 
  Country: None (occurrence: None)
  Receive Date: 20090413
  Receipt Date: 20090413
  Transmission Date: 20091009
  Serious: Yes (Other)
  Sender: FDA-Public Use
  Company Number: None

PATIENT
  Age: 50 Year
  Sex: Male
  Weight: 99.3377 kg

DRUGS (3)
  1. ENDOCET 10MG/ 325 TAB ENDO PHARMACEUTICALS [Suspect]
     Indication: INTERVERTEBRAL DISC DEGENERATION
     Dosage: 1-2 BY MOUTH EVERY 4-6 HOURS PO
     Route: 048
     Dates: start: 20090410, end: 20090412
  2. ENDOCET 10MG/ 325 TAB ENDO PHARMACEUTICALS [Suspect]
     Indication: INTERVERTEBRAL DISC DISORDER
     Dosage: 1-2 BY MOUTH EVERY 4-6 HOURS PO
     Route: 048
     Dates: start: 20090410, end: 20090412
  3. ENDOCET 10MG/ 325 TAB ENDO PHARMACEUTICALS [Suspect]
     Indication: SPINAL OSTEOARTHRITIS
     Dosage: 1-2 BY MOUTH EVERY 4-6 HOURS PO
     Route: 048
     Dates: start: 20090410, end: 20090412

REACTIONS (4)
  - HEADACHE [None]
  - PRODUCT QUALITY ISSUE [None]
  - PRURITUS [None]
  - REACTION TO DRUG EXCIPIENTS [None]
